FAERS Safety Report 12954861 (Version 1)
Quarter: 2016Q4

REPORT INFORMATION
  Report Type: Spontaneous
  Country: AT (occurrence: AT)
  Receive Date: 20161118
  Receipt Date: 20161118
  Transmission Date: 20170207
  Serious: Yes (Other)
  Sender: FDA-Public Use
  Company Number: PHHY2016AT120425

PATIENT
  Age: 38 Year
  Sex: Female
  Weight: 58 kg

DRUGS (3)
  1. HERCEPTIN [Suspect]
     Active Substance: TRASTUZUMAB
     Dosage: 2 MG/KG, QW
     Route: 065
     Dates: end: 20161012
  2. HERCEPTIN [Suspect]
     Active Substance: TRASTUZUMAB
     Indication: COLON CANCER
     Dosage: 4 MG/KG, QW
     Route: 065
     Dates: start: 20160824
  3. TYVERB [Suspect]
     Active Substance: LAPATINIB
     Indication: COLON CANCER
     Dosage: 4 DF, QD
     Route: 065
     Dates: start: 20160830, end: 20161019

REACTIONS (4)
  - Malignant neoplasm progression [Not Recovered/Not Resolved]
  - Product use issue [Unknown]
  - Carcinoembryonic antigen increased [Unknown]
  - Carbohydrate antigen 19-9 increased [Unknown]

NARRATIVE: CASE EVENT DATE: 20160830
